FAERS Safety Report 23691776 (Version 1)
Quarter: 2024Q1

REPORT INFORMATION
  Report Type: Spontaneous
  Country: US (occurrence: None)
  Receive Date: 20240329
  Receipt Date: 20240329
  Transmission Date: 20240409
  Serious: No
  Sender: FDA-Public Use
  Company Number: None

PATIENT
  Sex: Male

DRUGS (11)
  1. ENBREL [Suspect]
     Active Substance: ETANERCEPT
     Indication: Rheumatoid arthritis
     Dates: start: 20170818
  2. AMLODIPINE [Concomitant]
  3. AMOXICILLIN TAB [Concomitant]
  4. BABY ASPIRIN CHW [Concomitant]
  5. EZETIMIBE TAB [Concomitant]
  6. FOLIC ACID CAP [Concomitant]
  7. FUROSEMIDE [Concomitant]
  8. KLOR-CON M10 [Concomitant]
  9. LEFLUNOMIDE [Concomitant]
     Active Substance: LEFLUNOMIDE
  10. LISINOPRIL [Concomitant]
  11. MAGNESIUM POW OXIDE [Concomitant]

REACTIONS (1)
  - Chest pain [None]
